FAERS Safety Report 7753706-0 (Version None)
Quarter: 2011Q3

REPORT INFORMATION
  Report Type: 
  Country: None (occurrence: None)
  Receive Date: 20110915
  Receipt Date: 20110915
  Transmission Date: 20111222
  Serious: Yes (Hospitalization)
  Sender: FDA-Public Use
  Company Number: None

PATIENT
  Age: 83 Year
  Sex: Male
  Weight: 72 kg

DRUGS (5)
  1. ASPIRIN [Concomitant]
     Indication: CORONARY ARTERY DISEASE
     Dosage: 81MG
     Route: 048
     Dates: start: 20110909, end: 20110911
  2. CLOPIDOGREL [Suspect]
     Indication: CORONARY ARTERY DISEASE
     Dosage: 75MG
     Route: 048
     Dates: start: 20110909, end: 20110911
  3. ATORVASTATIN [Concomitant]
  4. NITROGLYCERIN 2% TOPICAL OINTMENT [Concomitant]
  5. METOPROLOL SUCCINATE [Concomitant]

REACTIONS (3)
  - SKIN EXFOLIATION [None]
  - RASH MACULAR [None]
  - SCAB [None]
